FAERS Safety Report 5656124-4 (Version None)
Quarter: 2008Q1

REPORT INFORMATION
  Report Type: 
  Country: None (occurrence: None)
  Receive Date: 20080305
  Receipt Date: 20080222
  Transmission Date: 20080703
  Serious: Yes (Other)
  Sender: FDA-Public Use
  Company Number: 163-20785-08011296

PATIENT
  Age: 69 Year
  Sex: Female

DRUGS (1)
  1. THALOMID [Suspect]
     Indication: MULTIPLE MYELOMA
     Dosage: 200 MG, 4 IN 1 D, ORAL
     Route: 048
     Dates: start: 20070728, end: 20080101

REACTIONS (5)
  - ABASIA [None]
  - ALOPECIA [None]
  - HYPOAESTHESIA [None]
  - MALAISE [None]
  - OCULAR HYPERAEMIA [None]
